FAERS Safety Report 17925845 (Version 1)
Quarter: 2020Q2

REPORT INFORMATION
  Report Type: Spontaneous
  Country: DE (occurrence: DE)
  Receive Date: 20200622
  Receipt Date: 20200622
  Transmission Date: 20200714
  Serious: Yes (Hospitalization)
  Sender: FDA-Public Use
  Company Number: DE-TEVA-2020-DE-1789130

PATIENT
  Age: 92 Year
  Sex: Female
  Weight: 76.5 kg

DRUGS (7)
  1. BISOPROLOL [Suspect]
     Active Substance: BISOPROLOL
     Dosage: 7.5 MILLIGRAM DAILY; 1-01-0
  2. OLMESARTAN [Concomitant]
     Active Substance: OLMESARTAN
     Dosage: 20 MILLIGRAM DAILY;  1-0-0-0
  3. FIXAPROST 50MIKROGRAMM/ML + 5MG/ML AUGENTROPFEN [Concomitant]
     Dosage: 0-0-0-1,
  4. KALINOR [Concomitant]
     Dosage: 1 DOSAGE FORMS DAILY; 1-0-0-0,
  5. APIXABAN [Concomitant]
     Active Substance: APIXABAN
     Dosage: 5 MILLIGRAM DAILY; 1-0-1-0
  6. TORASEMID [Suspect]
     Active Substance: TORSEMIDE
     Dosage: 50 MILLIGRAM DAILY;  1-0-0-0
  7. AMLODIPIN [Suspect]
     Active Substance: AMLODIPINE BESYLATE
     Dosage: 10 MILLIGRAM DAILY; 1-0-1-0

REACTIONS (8)
  - Rhonchi [Unknown]
  - Oxygen saturation decreased [Unknown]
  - Cyanosis [Unknown]
  - Product dose omission [Unknown]
  - Dyspnoea [Unknown]
  - Hypoxia [Unknown]
  - General physical health deterioration [Unknown]
  - Oedema peripheral [Unknown]
